FAERS Safety Report 7020360-5 (Version None)
Quarter: 2010Q3

REPORT INFORMATION
  Report Type: 
  Country: None (occurrence: None)
  Receive Date: 20100921
  Receipt Date: 20100812
  Transmission Date: 20110219
  Serious: Yes (Death, Hospitalization)
  Sender: FDA-Public Use
  Company Number: PPC201000061

PATIENT
  Age: 50 Year
  Sex: Male

DRUGS (6)
  1. AMIODARONE HCL [Suspect]
     Indication: ATRIAL FLUTTER
     Dates: start: 20030101, end: 20060601
  2. AMIODARONE HCL [Suspect]
     Indication: DISEASE RECURRENCE
     Dates: start: 20030101, end: 20060601
  3. AMIODARONE HCL [Suspect]
     Indication: VENTRICULAR TACHYCARDIA
     Dates: start: 20030101, end: 20060601
  4. AMIODARONE HCL [Suspect]
     Indication: ATRIAL FLUTTER
     Dates: start: 20060801
  5. AMIODARONE HCL [Suspect]
     Indication: DISEASE RECURRENCE
     Dates: start: 20060801
  6. AMIODARONE HCL [Suspect]
     Indication: VENTRICULAR TACHYCARDIA
     Dates: start: 20060801

REACTIONS (10)
  - ATRIAL FLUTTER [None]
  - CARDIAC ARREST [None]
  - CHEST PAIN [None]
  - DILATATION VENTRICULAR [None]
  - DISEASE RECURRENCE [None]
  - DYSPNOEA [None]
  - HYPERTHYROIDISM [None]
  - LEFT VENTRICULAR DYSFUNCTION [None]
  - MITRAL VALVE INCOMPETENCE [None]
  - VENTRICULAR TACHYCARDIA [None]
